FAERS Safety Report 7113766-7 (Version None)
Quarter: 2010Q4

REPORT INFORMATION
  Report Type: 
  Country: None (occurrence: None)
  Receive Date: 20101119
  Receipt Date: 20101111
  Transmission Date: 20110411
  Serious: Yes (Other)
  Sender: FDA-Public Use
  Company Number: US-WATSON-2010-14915

PATIENT
  Age: 46 Year
  Sex: Female

DRUGS (2)
  1. PREDNISONE [Suspect]
     Indication: ASTHMA
     Dosage: UNK
  2. MONTELUKAST [Suspect]
     Indication: ASTHMA
     Dosage: UNK

REACTIONS (2)
  - EOSINOPHILIC MYOCARDITIS [None]
  - STEROID WITHDRAWAL SYNDROME [None]
